FAERS Safety Report 22139312 (Version 1)
Quarter: 2023Q1

REPORT INFORMATION
  Report Type: Spontaneous
  Country: US (occurrence: US)
  Receive Date: 20230327
  Receipt Date: 20230327
  Transmission Date: 20230417
  Serious: No
  Sender: FDA-Public Use
  Company Number: US-drreddys-SPO/USA/23/0161806

PATIENT
  Age: 29 Year

DRUGS (1)
  1. ZENATANE [Suspect]
     Active Substance: ISOTRETINOIN
     Indication: Product used for unknown indication
     Dosage: RMA ISSUE DATE: 30 DECEMBER 2022, 04:07:00 PM,  27 JANUARY 2023, 04:28:55 PM,

REACTIONS (1)
  - Treatment noncompliance [Unknown]
